FAERS Safety Report 8473791-0 (Version None)
Quarter: 2012Q2

REPORT INFORMATION
  Report Type: 
  Country: None (occurrence: None)
  Receive Date: 20120628
  Receipt Date: 20111230
  Transmission Date: 20120825
  Serious: Yes (Other)
  Sender: FDA-Public Use
  Company Number: US-MYLANLABS-2011S1023555

PATIENT
  Age: 29 Year
  Sex: Female
  Weight: 78.02 kg

DRUGS (3)
  1. CLOZAPINE [Suspect]
     Indication: SCHIZOPHRENIA
     Route: 048
     Dates: start: 20091214, end: 20111111
  2. CLOZAPINE [Suspect]
     Route: 048
     Dates: start: 20091214, end: 20111111
  3. ORAL CONTRACEPTIVE NOS [Concomitant]

REACTIONS (2)
  - GRANULOCYTOPENIA [None]
  - WHITE BLOOD CELL COUNT DECREASED [None]
